FAERS Safety Report 4952564-7 (Version None)
Quarter: 2006Q1

REPORT INFORMATION
  Report Type: 
  Country: None (occurrence: None)
  Receive Date: 20060317
  Receipt Date: 20060306
  Transmission Date: 20060701
  Serious: Yes (Hospitalization, Disabling, Other)
  Sender: FDA-Public Use
  Company Number: 2006034003

PATIENT
  Age: 46 Year
  Sex: Female

DRUGS (1)
  1. ALPRAZOLAM [Suspect]
     Indication: PANIC REACTION
     Dosage: 2 MG (2 MG, 1 IN 1 D), ORAL
     Route: 048
     Dates: start: 19870101

REACTIONS (4)
  - IATROGENIC INJURY [None]
  - JOINT INJURY [None]
  - MENISCUS LESION [None]
  - ROAD TRAFFIC ACCIDENT [None]
